FAERS Safety Report 9663349 (Version 1)
Quarter: 2013Q4

REPORT INFORMATION
  Report Type: Spontaneous
  Country: US (occurrence: US)
  Receive Date: 20131101
  Receipt Date: 20131101
  Transmission Date: 20140711
  Serious: Yes (Death, Other)
  Sender: FDA-Public Use
  Company Number: US-BRISTOL-MYERS SQUIBB COMPANY-19691120

PATIENT
  Age: 80 Year
  Sex: Female

DRUGS (1)
  1. ELIQUIS [Suspect]
     Dosage: 1 DF = 10 UNITS NOS

REACTIONS (5)
  - Pneumonitis [Fatal]
  - Chronic obstructive pulmonary disease [Fatal]
  - Peritoneal haemorrhage [Unknown]
  - Renal failure acute [Unknown]
  - Atrial fibrillation [Unknown]
